FAERS Safety Report 4796156-1 (Version None)
Quarter: 2005Q4

REPORT INFORMATION
  Report Type: 
  Country: None (occurrence: None)
  Receive Date: 20051007
  Receipt Date: 20050929
  Transmission Date: 20060501
  Serious: No
  Sender: FDA-Public Use
  Company Number: TPA2005A01024

PATIENT
  Age: 53 Year
  Sex: Female
  Weight: 125.6464 kg

DRUGS (6)
  1. ACTOS [Suspect]
     Indication: DIABETES MELLITUS NON-INSULIN-DEPENDENT
     Dosage: SEE IMAGE
     Route: 048
     Dates: start: 20050601, end: 20050830
  2. ACTOS [Suspect]
     Indication: DIABETES MELLITUS NON-INSULIN-DEPENDENT
     Dosage: SEE IMAGE
     Route: 048
     Dates: start: 20020901
  3. METFORMIN (METFORMIN) [Concomitant]
  4. GLIPIZIDE [Concomitant]
  5. LISINOPRIL [Concomitant]
  6. IMMODIUM (LOPERAMIDE) [Concomitant]

REACTIONS (6)
  - ABDOMINAL DISTENSION [None]
  - BREAST CANCER [None]
  - BREAST DISCOMFORT [None]
  - FLUID RETENTION [None]
  - MUSCULAR WEAKNESS [None]
  - PREMENSTRUAL SYNDROME [None]
